FAERS Safety Report 4565960-7 (Version None)
Quarter: 2005Q1

REPORT INFORMATION
  Report Type: 
  Country: None (occurrence: None)
  Receive Date: 20050131
  Receipt Date: 20050121
  Transmission Date: 20050727
  Serious: Yes (Hospitalization)
  Sender: FDA-Public Use
  Company Number: GB-MERCK-0501GBR00228

PATIENT
  Age: 72 Year
  Sex: Female

DRUGS (12)
  1. ZOCOR [Suspect]
     Indication: BLOOD CHOLESTEROL INCREASED
     Route: 048
     Dates: start: 20041220, end: 20041227
  2. BENDROFLUMETHIAZIDE [Suspect]
     Indication: BLOOD PRESSURE INCREASED
     Route: 048
     Dates: end: 20041227
  3. FLUTICASONE PROPIONATE AND SALMETEROL XINAFOATE [Concomitant]
     Route: 055
  4. ALBUTEROL [Concomitant]
     Route: 055
  5. ASPIRIN [Concomitant]
     Route: 065
  6. ACETAMINOPHEN AND CODEINE PHOSPHATE [Concomitant]
     Route: 065
  7. PIZOTYLINE [Concomitant]
     Route: 065
  8. QUININE [Concomitant]
     Route: 065
  9. RABEPRAZOLE SODIUM [Concomitant]
     Route: 065
  10. ALBUTEROL SULFATE AND IPRATROPIUM BROMIDE [Concomitant]
     Route: 065
  11. CARBAMAZEPINE [Concomitant]
     Indication: TRIGEMINAL NEURALGIA
     Route: 065
  12. DILTIAZEM HYDROCHLORIDE [Concomitant]
     Route: 065
     Dates: start: 20041220

REACTIONS (9)
  - DEHYDRATION [None]
  - HYPONATRAEMIA [None]
  - INFLUENZA LIKE ILLNESS [None]
  - LIVER FUNCTION TEST ABNORMAL [None]
  - MALAISE [None]
  - MYALGIA [None]
  - NAUSEA [None]
  - PHARYNGOLARYNGEAL PAIN [None]
  - SEPSIS [None]
